FAERS Safety Report 6189322-4 (Version None)
Quarter: 2009Q2

REPORT INFORMATION
  Report Type: 
  Country: None (occurrence: None)
  Receive Date: 20090513
  Receipt Date: 20090506
  Transmission Date: 20091009
  Serious: Yes (Other)
  Sender: FDA-Public Use
  Company Number: US-GENENTECH-253009

PATIENT
  Sex: Female
  Weight: 68.2 kg

DRUGS (5)
  1. XOLAIR [Suspect]
     Indication: ASTHMA
     Dosage: 300 MG, Q4W
     Route: 058
     Dates: start: 20050729
  2. XOLAIR [Suspect]
     Dosage: 225 MG, 2/MONTH
     Route: 058
     Dates: start: 20070820
  3. XOLAIR [Suspect]
     Dosage: 150 MG, 1/MONTH
     Route: 058
     Dates: start: 20071002
  4. MIRALAX [Concomitant]
     Indication: DRUG USE FOR UNKNOWN INDICATION
  5. PREVACID [Concomitant]
     Indication: DRUG USE FOR UNKNOWN INDICATION

REACTIONS (3)
  - ANGER [None]
  - DYSPHAGIA [None]
  - VOCAL CORD PARALYSIS [None]
